FAERS Safety Report 9107943 (Version 2)
Quarter: 2013Q1

REPORT INFORMATION
  Report Type: Report from Study
  Country: US (occurrence: US)
  Receive Date: 20130221
  Receipt Date: 20130327
  Transmission Date: 20140127
  Serious: Yes (Other)
  Sender: FDA-Public Use
  Company Number: US-MERCK-1302USA008959

PATIENT
  Sex: 0

DRUGS (2)
  1. TEMOZOLOMIDE [Suspect]
     Indication: GLIOMA
  2. TEMOZOLOMIDE [Suspect]
     Indication: NEUROFIBROMATOSIS

REACTIONS (1)
  - Neoplasm malignant [Unknown]
